FAERS Safety Report 18755059 (Version 1)
Quarter: 2021Q1

REPORT INFORMATION
  Report Type: Spontaneous
  Country: US (occurrence: US)
  Receive Date: 20210115
  Receipt Date: 20210115
  Transmission Date: 20210419
  Serious: Yes (Hospitalization)
  Sender: FDA-Public Use
  Company Number: None

PATIENT
  Age: 79 Year
  Sex: Female
  Weight: 44.8 kg

DRUGS (18)
  1. ALBUTEROL. [Concomitant]
     Active Substance: ALBUTEROL
  2. PSYLLIUM [Concomitant]
     Active Substance: PLANTAGO SEED
  3. BAMLANIVIMAB FOR EUA [Suspect]
     Active Substance: BAMLANIVIMAB
     Route: 042
     Dates: start: 20201222, end: 20201222
  4. GABAPENTIN. [Concomitant]
     Active Substance: GABAPENTIN
  5. MELOXICAM. [Concomitant]
     Active Substance: MELOXICAM
  6. OMEPRAZOLE. [Concomitant]
     Active Substance: OMEPRAZOLE
  7. POTASSIUM CHLORIDE. [Concomitant]
     Active Substance: POTASSIUM CHLORIDE
  8. HYDROCODONE BITARTRATE AND ACETAMINOPHEN [Concomitant]
     Active Substance: ACETAMINOPHEN\HYDROCODONE BITARTRATE
  9. MELATONIN [Concomitant]
     Active Substance: MELATONIN
  10. DICLOFENAC [Concomitant]
     Active Substance: DICLOFENAC
  11. METHOCARBAMOL. [Concomitant]
     Active Substance: METHOCARBAMOL
  12. AMLODIPINE [Concomitant]
     Active Substance: AMLODIPINE BESYLATE
  13. OXYBUTYNIN. [Concomitant]
     Active Substance: OXYBUTYNIN CHLORIDE
  14. CITALOPRAM [Concomitant]
     Active Substance: CITALOPRAM HYDROBROMIDE
  15. LEVOTHYROXINE. [Concomitant]
     Active Substance: LEVOTHYROXINE
  16. ASPIRIN. [Concomitant]
     Active Substance: ASPIRIN
  17. HYDROXYZINE [Concomitant]
     Active Substance: HYDROXYZINE HYDROCHLORIDE
  18. MODAFINIL. [Concomitant]
     Active Substance: MODAFINIL

REACTIONS (6)
  - Chest pain [None]
  - Contusion [None]
  - Musculoskeletal chest pain [None]
  - Speech disorder [None]
  - Fall [None]
  - Pain in extremity [None]

NARRATIVE: CASE EVENT DATE: 20210111
